FAERS Safety Report 9669091 (Version 3)
Quarter: 2014Q1

REPORT INFORMATION
  Report Type: Report from Study
  Country: KR (occurrence: KR)
  Receive Date: 20131105
  Receipt Date: 20140102
  Transmission Date: 20141002
  Serious: Yes (Hospitalization)
  Sender: FDA-Public Use
  Company Number: KR-ASTELLAS-2013JP002154

PATIENT
  Age: 37 Year
  Sex: Male

DRUGS (19)
  1. TACROLIMUS MR4 CAPSULES [Suspect]
     Indication: IMMUNOSUPPRESSION
     Dosage: UNK
     Route: 048
     Dates: start: 20130103, end: 20130603
  2. TACROLIMUS MR4 CAPSULES [Suspect]
     Dosage: 8 MG, UNKNOWN/D
     Route: 048
     Dates: start: 20130604, end: 20131118
  3. TACROLIMUS MR4 CAPSULES [Suspect]
     Dosage: 7 MG, UNKNOWN/D
     Route: 048
     Dates: start: 20131119
  4. RAPAMUNE [Suspect]
     Indication: IMMUNOSUPPRESSION
     Dosage: UNK
     Route: 048
     Dates: start: 20130104, end: 20130821
  5. RAPAMUNE [Suspect]
     Dosage: 1 MG, QOD
     Route: 048
     Dates: start: 20130822
  6. ADALAT OROS [Concomitant]
     Dosage: 30 MG, UID/QD
     Route: 048
  7. DILATREND [Concomitant]
     Dosage: 12.5 MG, BID
     Route: 048
  8. HERBEN [Concomitant]
     Dosage: 30 MG, UID/QD
     Route: 048
  9. NISOLONE [Concomitant]
     Dosage: 5 MG, BID
     Route: 048
  10. PANTOLINE [Concomitant]
     Dosage: 40 MG, UID/QD
     Route: 042
  11. LAMINA-G [Concomitant]
     Dosage: 50 MG, TID
     Route: 048
  12. LAMINA-G [Concomitant]
     Dosage: 20 MG, TID
     Route: 048
  13. LIPITOR [Concomitant]
     Dosage: 10 MG, UID/QD
     Route: 048
  14. PMS-NYSTATIN [Concomitant]
     Dosage: 0.25 MG, QID
     Route: 048
  15. PMS-NYSTATIN [Concomitant]
     Dosage: 5 MG, QID
     Route: 048
  16. NORVASC [Concomitant]
     Dosage: 20 MG, UID/QD
     Route: 048
  17. NORVASC [Concomitant]
     Dosage: 10 MG, UID/QD
     Route: 048
  18. SOLONDO [Concomitant]
     Dosage: 10 MG, UID/QD
     Route: 048
  19. SOLONDO [Concomitant]
     Dosage: 5 MG, UID/QD
     Route: 048

REACTIONS (4)
  - Ileus paralytic [Recovered/Resolved]
  - Hydronephrosis [Recovered/Resolved]
  - Pyrexia [Recovered/Resolved]
  - Osteonecrosis [Recovering/Resolving]
